FAERS Safety Report 24357129 (Version 1)
Quarter: 2024Q3

REPORT INFORMATION
  Report Type: Spontaneous
  Country: CN (occurrence: CN)
  Receive Date: 20240924
  Receipt Date: 20240924
  Transmission Date: 20241017
  Serious: Yes (Hospitalization, Other)
  Sender: SANOFI AVENTIS
  Company Number: CN-SA-2024SA274718

PATIENT
  Age: 52 Year
  Sex: Male

DRUGS (2)
  1. CLOPIDOGREL BISULFATE [Suspect]
     Active Substance: CLOPIDOGREL BISULFATE
     Indication: Thrombosis
     Dosage: 75 MG, QD
     Route: 048
     Dates: start: 20240701, end: 20240912
  2. ASPIRIN [Suspect]
     Active Substance: ASPIRIN
     Indication: Thrombosis
     Dosage: 100 MG, QD
     Route: 048
     Dates: start: 20240701, end: 20240912

REACTIONS (4)
  - Presyncope [Recovered/Resolved]
  - Haematochezia [Recovering/Resolving]
  - Asthenia [Recovering/Resolving]
  - Faeces discoloured [Recovering/Resolving]

NARRATIVE: CASE EVENT DATE: 20240911
